FAERS Safety Report 23859145 (Version 3)
Quarter: 2024Q3

REPORT INFORMATION
  Report Type: Report from Study
  Country: US (occurrence: US)
  Receive Date: 20240515
  Receipt Date: 20240816
  Transmission Date: 20241017
  Serious: Yes (Hospitalization, Other)
  Sender: NOVARTIS
  Company Number: US-002147023-NVSC2024US102591

PATIENT
  Age: 49 Year
  Sex: Male

DRUGS (1)
  1. KESIMPTA [Suspect]
     Active Substance: OFATUMUMAB
     Indication: Relapsing multiple sclerosis
     Dosage: 20 MG, QMO
     Route: 058
     Dates: start: 20220616

REACTIONS (5)
  - Stress [Unknown]
  - Blood cholesterol increased [Unknown]
  - Pain [Unknown]
  - Myocardial infarction [Unknown]
  - Vertigo [Unknown]

NARRATIVE: CASE EVENT DATE: 20240513
